FAERS Safety Report 6259287-5 (Version None)
Quarter: 2009Q3

REPORT INFORMATION
  Report Type: 
  Country: None (occurrence: None)
  Receive Date: 20090707
  Receipt Date: 20090629
  Transmission Date: 20100115
  Serious: Yes (Hospitalization)
  Sender: FDA-Public Use
  Company Number: PHHO2009NL08477

PATIENT
  Sex: Male
  Weight: 174 kg

DRUGS (1)
  1. ELIDEL ASM+CRE [Suspect]
     Indication: DERMATITIS ATOPIC
     Dosage: PRN
     Route: 061
     Dates: start: 20041130

REACTIONS (3)
  - MIDDLE EAR EFFUSION [None]
  - OTITIS MEDIA [None]
  - PSEUDOMONAS INFECTION [None]
